FAERS Safety Report 15260289 (Version 1)
Quarter: 2018Q3

REPORT INFORMATION
  Report Type: Spontaneous
  Country: IN (occurrence: IN)
  Receive Date: 20180809
  Receipt Date: 20180809
  Transmission Date: 20181010
  Serious: Yes (Hospitalization)
  Sender: FDA-Public Use
  Company Number: IN-MYLANLABS-2018M1060092

PATIENT
  Age: 8 Year
  Weight: 25 kg

DRUGS (9)
  1. NORMAL SALINE [Concomitant]
     Active Substance: SODIUM CHLORIDE
     Indication: PRODUCT USED FOR UNKNOWN INDICATION
     Dosage: SUBSTITUTED WITH PLASMA?LYTE A ON BEING SUSPECTED AS THE CAUSATIVE DRUG ON POST?OPERATIVE DAY 1
     Route: 065
  2. TOPIRAMATE. [Suspect]
     Active Substance: TOPIRAMATE
     Dosage: RE?STARTED AFTER THE PROCEDURE ADMINISTERED VIA NASOGASTRIC TUBE
     Route: 050
  3. LACOSAMIDE. [Concomitant]
     Active Substance: LACOSAMIDE
     Indication: GENERALISED TONIC-CLONIC SEIZURE
     Dosage: 100MG TWICE DAILY TABLET BEFORE THE PROCEDURE
     Route: 065
  4. TOPIRAMATE. [Suspect]
     Active Substance: TOPIRAMATE
     Indication: GENERALISED TONIC-CLONIC SEIZURE
     Dosage: 100MG TWICE DAILY BEFORE THE PROCEDURE
     Route: 065
  5. CLOBAZAM [Concomitant]
     Active Substance: CLOBAZAM
     Dosage: RE?STARTED AFTER THE PROCEDURE ADMINISTERED VIA NASOGASTRIC TUBE
     Route: 050
  6. CLOBAZAM [Concomitant]
     Active Substance: CLOBAZAM
     Indication: GENERALISED TONIC-CLONIC SEIZURE
     Dosage: 10MG ONCE DAILY BEFORE THE PROCEDURE
     Route: 065
  7. MIDAZOLAM [Concomitant]
     Active Substance: MIDAZOLAM HYDROCHLORIDE
     Indication: SEDATION
     Dosage: 1 MG/HR STARTED IN ICU
     Route: 050
  8. FENTANYL. [Concomitant]
     Active Substance: FENTANYL
     Indication: SEDATION
     Dosage: 20MICROG/HR STARTED IN ICU
     Route: 050
  9. LACOSAMIDE. [Concomitant]
     Active Substance: LACOSAMIDE
     Indication: GENERALISED TONIC-CLONIC SEIZURE
     Dosage: RE?STARTED AFTER THE PROCEDURE ADMINISTERED VIA NASOGASTRIC TUBE
     Route: 050

REACTIONS (2)
  - Haemodynamic instability [Recovered/Resolved]
  - Metabolic acidosis [Recovered/Resolved]
